FAERS Safety Report 4417556-5 (Version None)
Quarter: 2004Q3

REPORT INFORMATION
  Report Type: 
  Country: None (occurrence: None)
  Receive Date: 20040804
  Receipt Date: 20040727
  Transmission Date: 20050211
  Serious: Yes (Hospitalization)
  Sender: FDA-Public Use
  Company Number: A-CH2004-06973

PATIENT
  Age: 32 Year
  Sex: Female

DRUGS (6)
  1. TRACLEER [Suspect]
     Indication: PULMONARY HYPERTENSION
     Dosage: SEE IMAGE
     Route: 048
     Dates: start: 20040614, end: 20040101
  2. TRACLEER [Suspect]
     Indication: PULMONARY HYPERTENSION
     Dosage: SEE IMAGE
     Route: 048
     Dates: start: 20040101
  3. LASIX [Concomitant]
  4. PREVISCAN (FLUINDIONE) [Concomitant]
  5. POTASSIUM CHLORIDE [Concomitant]
  6. LEVOTHYROXINE SODIUM [Concomitant]

REACTIONS (1)
  - NEUTROPENIA [None]
